FAERS Safety Report 10026729 (Version 2)
Quarter: 2014Q2

REPORT INFORMATION
  Report Type: Spontaneous
  Country: CA (occurrence: None)
  Receive Date: 20140318
  Receipt Date: 20140505
  Transmission Date: 20141212
  Serious: Yes (Hospitalization)
  Sender: FDA-Public Use
  Company Number: CA-014982

PATIENT
  Age: 69 Year
  Sex: Male

DRUGS (6)
  1. DEGARELIX [Suspect]
     Indication: PROSTATE CANCER
     Route: 058
     Dates: start: 20130506
  2. ANTACID [Concomitant]
  3. SERUM LIPID REDUCING AGENTS [Concomitant]
  4. CALCIUM + VIT D [Concomitant]
  5. GABAPENTIN [Concomitant]
  6. PURE VITAMIN C [Concomitant]

REACTIONS (1)
  - Abdominal abscess [None]
